FAERS Safety Report 9326340 (Version 1)
Quarter: 2013Q2

REPORT INFORMATION
  Report Type: Spontaneous
  Country: JP (occurrence: None)
  Receive Date: 20130530
  Receipt Date: 20130530
  Transmission Date: 20140414
  Serious: Yes (Hospitalization)
  Sender: FDA-Public Use
  Company Number: 2013P1006511

PATIENT
  Age: 33 Year
  Sex: Male

DRUGS (2)
  1. RANITIDINE [Suspect]
     Indication: CROHN^S DISEASE
     Dates: start: 2001, end: 2011
  2. MESALAZINE [Suspect]
     Indication: CROHN^S DISEASE
     Dates: start: 2001, end: 2011

REACTIONS (2)
  - Renal failure [None]
  - Glomerulonephritis [None]
